FAERS Safety Report 13330745 (Version 1)
Quarter: 2017Q1

REPORT INFORMATION
  Report Type: Spontaneous
  Country: GB (occurrence: GB)
  Receive Date: 20170313
  Receipt Date: 20170313
  Transmission Date: 20170428
  Serious: Yes (Disabling)
  Sender: FDA-Public Use
  Company Number: GB-MYLANLABS-2017M1015199

PATIENT

DRUGS (2)
  1. FLUOXETINE MYLAN [Suspect]
     Active Substance: FLUOXETINE HYDROCHLORIDE
     Dosage: UNK
     Route: 048
  2. RISPERIDONE MYLAN [Suspect]
     Active Substance: RISPERIDONE
     Dosage: UNK
     Route: 048

REACTIONS (4)
  - Akathisia [Unknown]
  - Gastrointestinal disorder [Unknown]
  - Aggression [Unknown]
  - Intentional self-injury [Unknown]

NARRATIVE: CASE EVENT DATE: 2013
